FAERS Safety Report 8334853 (Version 2)
Quarter: 2012Q4

REPORT INFORMATION
  Report Type: 
  Country: US (occurrence: US)
  Receive Date: 20120112
  Receipt Date: 20120926
  Transmission Date: 20130627
  Serious: Yes (Hospitalization)
  Sender: FDA-Public Use
  Company Number: US-GLAXOSMITHKLINE-A0814941A

PATIENT
  Age: 61 Year
  Sex: Male
  Weight: 106.4 kg

DRUGS (5)
  1. AVANDIA [Suspect]
     Indication: DIABETES MELLITUS
     Dosage: 4MG Per day
     Route: 048
     Dates: start: 20030430, end: 20070622
  2. AVANDAMET [Suspect]
     Indication: DIABETES MELLITUS
     Dosage: 1TAB Twice per day
     Route: 048
     Dates: start: 20040721, end: 2005
  3. AVANDARYL [Suspect]
     Indication: DIABETES MELLITUS
     Route: 048
     Dates: start: 20081125
  4. LESCOL [Concomitant]
  5. LOTREL [Concomitant]

REACTIONS (1)
  - Myocardial infarction [Unknown]
